FAERS Safety Report 5598609-5 (Version None)
Quarter: 2008Q1

REPORT INFORMATION
  Report Type: 
  Country: None (occurrence: None)
  Receive Date: 20080122
  Receipt Date: 20070507
  Transmission Date: 20080703
  Serious: No
  Sender: FDA-Public Use
  Company Number: US-BAUSCH-2007BL001513

PATIENT
  Age: 67 Year
  Sex: Female

DRUGS (6)
  1. DESMOPRESSIN ACETATE [Suspect]
     Indication: DIABETES INSIPIDUS
     Route: 045
     Dates: start: 20070314, end: 20070406
  2. DESMOPRESSIN ACETATE [Suspect]
     Route: 045
     Dates: start: 20070407, end: 20070420
  3. VITAMIN CAP [Concomitant]
     Indication: VITAMIN SUPPLEMENTATION
  4. CALCIUM GLUCONATE [Concomitant]
     Indication: MINERAL SUPPLEMENTATION
  5. VITAMIN D [Concomitant]
     Indication: VITAMIN SUPPLEMENTATION
  6. FOLIC ACID [Concomitant]
     Indication: VITAMIN SUPPLEMENTATION

REACTIONS (2)
  - BLOOD PRESSURE INCREASED [None]
  - DRUG EFFECT PROLONGED [None]
